FAERS Safety Report 23971902 (Version 1)
Quarter: 2024Q2

REPORT INFORMATION
  Report Type: Report from Study
  Country: HU (occurrence: HU)
  Receive Date: 20240613
  Receipt Date: 20240613
  Transmission Date: 20240716
  Serious: Yes (Other)
  Sender: FDA-Public Use
  Company Number: HU-Merck Healthcare KGaA-2024030646

PATIENT
  Age: 86 Year
  Sex: Male

DRUGS (4)
  1. CETUXIMAB [Suspect]
     Active Substance: CETUXIMAB
     Indication: Colorectal cancer metastatic
     Dosage: UNK UNK, UNKNOWN
     Route: 065
  2. LEUCOVORIN [Suspect]
     Active Substance: LEUCOVORIN\LEUCOVORIN CALCIUM
     Indication: Colorectal cancer metastatic
     Dosage: UNK UNK, UNKNOWN
     Route: 065
  3. FLUOROURACIL [Suspect]
     Active Substance: FLUOROURACIL
     Indication: Colorectal cancer metastatic
     Dosage: UNK UNK, UNKNOWN
     Route: 065
  4. IRINOTECAN [Suspect]
     Active Substance: IRINOTECAN
     Indication: Colorectal cancer metastatic
     Dosage: UNK UNK, UNKNOWN
     Route: 065

REACTIONS (2)
  - Erysipelas [Unknown]
  - Skin reaction [Unknown]

NARRATIVE: CASE EVENT DATE: 20240603
